FAERS Safety Report 21814304 (Version 3)
Quarter: 2023Q2

REPORT INFORMATION
  Report Type: Report from Study
  Country: US (occurrence: None)
  Receive Date: 20230104
  Receipt Date: 20230601
  Transmission Date: 20230721
  Serious: Yes (Hospitalization)
  Sender: FDA-Public Use
  Company Number: US-ROCHE-3189880

PATIENT
  Age: 59 Year
  Sex: Female
  Weight: 57.1 kg

DRUGS (7)
  1. MOSUNETUZUMAB [Suspect]
     Active Substance: MOSUNETUZUMAB
     Indication: B-cell lymphoma
     Dosage: ON 26/SEP/2022, SHE RECEIVED MOST RECENT DOSE 5 MG OF STUDY DRUG MOSUNETUZUMAB PRIOR TO SAE/AE.
     Route: 042
     Dates: start: 20220926
  2. MOSUNETUZUMAB [Suspect]
     Active Substance: MOSUNETUZUMAB
     Indication: Chronic lymphocytic leukaemia
     Dosage: ON 26/SEP/2022 AT 10:43 AM, SHE RECEIVED MOST RECENT DOSE 45 MG OF STUDY DRUG MOSUNETUZUMAB PRIOR TO
     Route: 058
     Dates: start: 20220926
  3. LUTEINUM [Concomitant]
     Active Substance: SUS SCROFA CORPUS LUTEUM
     Route: 048
     Dates: start: 20190723
  4. CALCIUM CARBONATE [Concomitant]
     Active Substance: CALCIUM CARBONATE
     Route: 048
     Dates: start: 20170810
  5. DIGESTIVE PROBIOTICS ADVANCED [Concomitant]
     Route: 048
     Dates: start: 20170810
  6. OMEGA 3 [Concomitant]
     Active Substance: CAPSAICIN
     Route: 048
     Dates: start: 20170403
  7. ENOXAPARIN [Concomitant]
     Active Substance: ENOXAPARIN
     Indication: Prophylaxis
     Route: 058
     Dates: start: 20220927, end: 20220927

REACTIONS (1)
  - Cytokine release syndrome [Recovered/Resolved]

NARRATIVE: CASE EVENT DATE: 20220927
